FAERS Safety Report 16737796 (Version 1)
Quarter: 2019Q3

REPORT INFORMATION
  Report Type: Spontaneous
  Country: US (occurrence: US)
  Receive Date: 20190823
  Receipt Date: 20190823
  Transmission Date: 20191005
  Serious: Yes (Hospitalization)
  Sender: FDA-Public Use
  Company Number: US-009507513-1908USA006562

PATIENT
  Sex: Female

DRUGS (7)
  1. PROVENTIL [Suspect]
     Active Substance: ALBUTEROL
     Indication: ASTHMA
     Dosage: BETWEEN 1 AND 3 PUFFS PER DAY
     Route: 055
     Dates: start: 2015
  2. PROVENTIL [Suspect]
     Active Substance: ALBUTEROL
     Indication: BRONCHITIS
     Dosage: BETWEEN 1 AND 3 PUFFS PER DAY
  3. PROVENTIL [Suspect]
     Active Substance: ALBUTEROL
     Dosage: BETWEEN 1 AND 3 PUFFS PER DAY
  4. ADVAIR HFA [Concomitant]
     Active Substance: FLUTICASONE PROPIONATE\SALMETEROL XINAFOATE
  5. MONTELUKAST [Concomitant]
     Active Substance: MONTELUKAST SODIUM
  6. PROVENTIL [Suspect]
     Active Substance: ALBUTEROL
     Indication: HYPERSENSITIVITY
     Dosage: BETWEEN 1 AND 3 PUFFS PER DAY
  7. ZYRTEC [Concomitant]
     Active Substance: CETIRIZINE HYDROCHLORIDE

REACTIONS (6)
  - Product quality issue [Unknown]
  - Influenza [Unknown]
  - Poor quality device used [Unknown]
  - Product use in unapproved indication [Unknown]
  - Influenza [Recovering/Resolving]
  - Hernia [Recovering/Resolving]

NARRATIVE: CASE EVENT DATE: 2015
